FAERS Safety Report 12225765 (Version 1)
Quarter: 2016Q1

REPORT INFORMATION
  Report Type: Spontaneous
  Country: US (occurrence: None)
  Receive Date: 20160330
  Receipt Date: 20160330
  Transmission Date: 20160526
  Serious: Yes (Other)
  Sender: FDA-Public Use
  Company Number: None

PATIENT
  Age: 51 Year
  Sex: Female
  Weight: 184.16 kg

DRUGS (16)
  1. FLUNISOLIDE 0.025 % [Suspect]
     Active Substance: FLUNISOLIDE
     Indication: MULTIPLE ALLERGIES
     Route: 055
     Dates: start: 20160122, end: 20160328
  2. BIOTINE [Concomitant]
     Active Substance: LACTOPEROXIDASE BOVINE\LYSOZYME HYDROCHLORIDE
  3. TRAMADOL. [Concomitant]
     Active Substance: TRAMADOL
  4. CROMOLYN [Concomitant]
     Active Substance: CROMOLYN
  5. HYDROCORTISONE CREAM [Concomitant]
     Active Substance: HYDROCORTISONE
  6. OXYBUTYNIN [Concomitant]
     Active Substance: OXYBUTYNIN
  7. BENADRYL [Concomitant]
     Active Substance: DIPHENHYDRAMINE HYDROCHLORIDE
  8. TENS [Concomitant]
  9. TRIAMT/HTCZ [Concomitant]
  10. GABAPENTIN. [Concomitant]
     Active Substance: GABAPENTIN
  11. OMEPRAZOLE. [Concomitant]
     Active Substance: OMEPRAZOLE
  12. LORATADINE. [Concomitant]
     Active Substance: LORATADINE
  13. VITAMIN D3 [Concomitant]
     Active Substance: CHOLECALCIFEROL
  14. BUPROPION. [Concomitant]
     Active Substance: BUPROPION
  15. YEAST SAUVE [Concomitant]
  16. CENTRIUM [Concomitant]

REACTIONS (2)
  - Weight loss poor [None]
  - Weight increased [None]

NARRATIVE: CASE EVENT DATE: 20160120
